FAERS Safety Report 6393921-4 (Version None)
Quarter: 2009Q4

REPORT INFORMATION
  Report Type: 
  Country: None (occurrence: None)
  Receive Date: 20091008
  Receipt Date: 20091002
  Transmission Date: 20100525
  Serious: Yes (Hospitalization)
  Sender: FDA-Public Use
  Company Number: PL-AMGEN-UK360895

PATIENT
  Sex: Male

DRUGS (6)
  1. PANITUMUMAB [Suspect]
     Indication: COLORECTAL CANCER
     Route: 042
     Dates: start: 20090720
  2. AMG 102 - BLINDED [Suspect]
     Indication: NEOPLASM MALIGNANT
     Dates: start: 20090720
  3. AMG 479 - BLINDED [Suspect]
     Indication: NEOPLASM
     Dates: start: 20090720
  4. CETIRIZINE HCL [Concomitant]
     Route: 048
     Dates: start: 20090720
  5. IBUPROFEN [Concomitant]
     Route: 048
     Dates: start: 20090501
  6. BLOOD CELLS, PACKED HUMAN [Concomitant]
     Route: 042
     Dates: start: 20090818

REACTIONS (1)
  - SMALL INTESTINAL OBSTRUCTION [None]
